FAERS Safety Report 6832736-7 (Version None)
Quarter: 2010Q3

REPORT INFORMATION
  Report Type: 
  Country: None (occurrence: None)
  Receive Date: 20100707
  Receipt Date: 20100625
  Transmission Date: 20110219
  Serious: Yes (Hospitalization)
  Sender: FDA-Public Use
  Company Number: 2010AP001329

PATIENT
  Age: 37 Year
  Sex: Female

DRUGS (9)
  1. LAMOTRIGINE [Suspect]
     Indication: EPILEPSY
     Dosage: 25 MG; QOD;  PO
     Route: 048
     Dates: start: 20100521, end: 20100603
  2. VALPROATE SODIUM [Concomitant]
  3. LORAZEPAM [Concomitant]
  4. MIDAZOLAM HCL [Concomitant]
  5. MACROGOL (MACROGOL) [Concomitant]
  6. SODIUM BICARBONATE IN PLASTIC CONTAINER [Concomitant]
  7. SODIUM CHLORIDE 0.9% [Concomitant]
  8. POTASSIUM CHLORIDE [Concomitant]
  9. RISPERIDONE [Concomitant]

REACTIONS (8)
  - DECREASED APPETITE [None]
  - ERYTHEMA [None]
  - LETHARGY [None]
  - LIP BLISTER [None]
  - LIP SWELLING [None]
  - MOBILITY DECREASED [None]
  - MOUTH ULCERATION [None]
  - RASH PAPULAR [None]
